FAERS Safety Report 10402252 (Version 1)
Quarter: 2014Q3

REPORT INFORMATION
  Report Type: Spontaneous
  Country: US (occurrence: US)
  Receive Date: 20140822
  Receipt Date: 20140822
  Transmission Date: 20150326
  Serious: Yes (Other)
  Sender: FDA-Public Use
  Company Number: US-PFIZER INC-2014233474

PATIENT
  Age: 70 Year
  Sex: Male
  Weight: 38.55 kg

DRUGS (3)
  1. XANAX [Suspect]
     Active Substance: ALPRAZOLAM
     Dosage: 2.5 MG, 1X/DAY
     Route: 048
     Dates: start: 2014
  2. XANAX [Suspect]
     Active Substance: ALPRAZOLAM
     Indication: ANXIETY
     Dosage: 5.5 MG, 1X/DAY
     Route: 048
  3. XANAX [Suspect]
     Active Substance: ALPRAZOLAM
     Indication: PANIC ATTACK
     Dosage: 4.5 MG, 1X/DAY
     Route: 048
     Dates: end: 2014

REACTIONS (10)
  - Feeling abnormal [Unknown]
  - Abnormal behaviour [Unknown]
  - Palpitations [Unknown]
  - Malaise [Unknown]
  - Drug ineffective [Unknown]
  - Convulsion [Unknown]
  - Hyperhidrosis [Unknown]
  - Musculoskeletal stiffness [Unknown]
  - Joint stiffness [Unknown]
  - Aggression [Unknown]

NARRATIVE: CASE EVENT DATE: 2014
